FAERS Safety Report 13465456 (Version 2)
Quarter: 2017Q2

REPORT INFORMATION
  Report Type: Report from Study
  Country: US (occurrence: US)
  Receive Date: 20170421
  Receipt Date: 20170515
  Transmission Date: 20170830
  Serious: Yes (Other)
  Sender: FDA-Public Use
  Company Number: US-AMGEN-USASL2017058886

PATIENT
  Age: 65 Year
  Sex: Male

DRUGS (5)
  1. TIZANIDINE. [Concomitant]
     Active Substance: TIZANIDINE
     Indication: MUSCLE SPASMS
     Dosage: UNK UNK, AS NECESSARY
  2. MONTELUKAST [Concomitant]
     Active Substance: MONTELUKAST SODIUM
     Dosage: UNK
  3. ENBREL [Suspect]
     Active Substance: ETANERCEPT
     Indication: RHEUMATOID ARTHRITIS
     Dosage: UNK UNK, QWK
     Route: 065
  4. PERCOCET [Concomitant]
     Active Substance: ACETAMINOPHEN\OXYCODONE HYDROCHLORIDE
     Dosage: UNK UNK, TID
  5. FLAXSEED [Concomitant]
     Active Substance: FLAX SEED
     Dosage: UNK

REACTIONS (15)
  - Blood pressure increased [Unknown]
  - Anxiety [Unknown]
  - Arthralgia [Unknown]
  - Hypoacusis [Not Recovered/Not Resolved]
  - Stress [Unknown]
  - Nerve compression [Unknown]
  - Ligament injury [Unknown]
  - Muscle injury [Unknown]
  - Rheumatoid arthritis [Unknown]
  - Bone operation [Unknown]
  - Arthropathy [Unknown]
  - Depression [Unknown]
  - Pain [Unknown]
  - Lumbar spinal stenosis [Unknown]
  - Suicidal ideation [Unknown]

NARRATIVE: CASE EVENT DATE: 2001
